FAERS Safety Report 9896016 (Version 1)
Quarter: 2014Q1

REPORT INFORMATION
  Report Type: Spontaneous
  Country: US (occurrence: US)
  Receive Date: 20140213
  Receipt Date: 20140213
  Transmission Date: 20141002
  Serious: No
  Sender: FDA-Public Use
  Company Number: US-BRISTOL-MYERS SQUIBB COMPANY-18792994

PATIENT
  Age: 74 Year
  Sex: Female
  Weight: 89.79 kg

DRUGS (2)
  1. ORENCIA [Suspect]
     Indication: RHEUMATOID ARTHRITIS
     Dosage: LAST INFUSION: 25MAR2013?MEDICATION STARTED 5MONTHS AGO.
     Route: 042
  2. METHOTREXATE [Concomitant]
     Indication: RHEUMATOID ARTHRITIS
     Dosage: THERAPY: 1 YEAR, STARTED WITH 6 PILSS A WEEK, THEAN INC TO 7 AND NOW TO 8/WEEK.

REACTIONS (1)
  - Drug ineffective [Unknown]
